FAERS Safety Report 8839698 (Version 2)
Quarter: 2013Q1

REPORT INFORMATION
  Report Type: Spontaneous
  Country: CN (occurrence: CN)
  Receive Date: 20121015
  Receipt Date: 20130219
  Transmission Date: 20140127
  Serious: Yes (Other)
  Sender: FDA-Public Use
  Company Number: CN-JNJFOC-20120805248

PATIENT
  Sex: 0

DRUGS (3)
  1. PALIPERIDONE [Suspect]
     Indication: SCHIZOPHRENIA
     Route: 048
  2. PALIPERIDONE [Suspect]
     Indication: SCHIZOPHRENIA
     Dosage: 3-12 MG PER DAY
     Route: 048
  3. PALIPERIDONE [Suspect]
     Indication: SCHIZOPHRENIA
     Dosage: 6-12 MG
     Route: 048

REACTIONS (17)
  - Disturbance in attention [Unknown]
  - Blood prolactin increased [Unknown]
  - Tachycardia [Unknown]
  - Fatigue [Unknown]
  - Akathisia [Unknown]
  - Somnolence [Unknown]
  - Myotonia [Unknown]
  - Nervousness [Unknown]
  - Blood triglycerides increased [Unknown]
  - Akinesia [Unknown]
  - Tremor [Unknown]
  - Dry mouth [Unknown]
  - Constipation [Unknown]
  - Dizziness postural [Unknown]
  - Amenorrhoea [Unknown]
  - Dystonia [Unknown]
  - Hypersomnia [Unknown]
